FAERS Safety Report 11637589 (Version 4)
Quarter: 2015Q4

REPORT INFORMATION
  Report Type: Spontaneous
  Country: US (occurrence: US)
  Receive Date: 20151016
  Receipt Date: 20151103
  Transmission Date: 20160304
  Serious: Yes (Hospitalization, Other)
  Sender: FDA-Public Use
  Company Number: US-TAKEDA-2015TUS014220

PATIENT
  Sex: Male
  Weight: 63.39 kg

DRUGS (13)
  1. ANAGRELIDE [Concomitant]
     Active Substance: ANAGRELIDE
     Dosage: UNK
  2. CARVEDILOL. [Concomitant]
     Active Substance: CARVEDILOL
     Dosage: UNK
  3. LOPERAMIDE [Concomitant]
     Active Substance: LOPERAMIDE
     Dosage: UNK
  4. FLONASE                            /00908302/ [Concomitant]
     Active Substance: MOMETASONE FUROATE
     Dosage: UNK
  5. ASA [Concomitant]
     Active Substance: ASPIRIN
     Dosage: UNK
  6. COLCRYS [Suspect]
     Active Substance: COLCHICINE
     Indication: GOUT
     Dosage: , QOD
     Route: 048
     Dates: start: 20150821, end: 20150928
  7. LASIX [Concomitant]
     Active Substance: FUROSEMIDE
     Dosage: UNK
  8. ULORIC [Suspect]
     Active Substance: FEBUXOSTAT
     Indication: HYPERURICAEMIA
     Dosage: 40 MG, QD
     Route: 048
     Dates: start: 20150821, end: 20150928
  9. PRAVASTATIN [Concomitant]
     Active Substance: PRAVASTATIN\PRAVASTATIN SODIUM
     Dosage: UNK
  10. TRAZADOL [Concomitant]
     Dosage: UNK
  11. WARFARIN [Concomitant]
     Active Substance: WARFARIN
     Dosage: UNK
  12. ULORIC [Suspect]
     Active Substance: FEBUXOSTAT
     Indication: GOUT
  13. FAMOTIDINE. [Concomitant]
     Active Substance: FAMOTIDINE
     Dosage: UNK

REACTIONS (4)
  - Renal failure [Not Recovered/Not Resolved]
  - Rash [Recovered/Resolved]
  - Fatigue [Not Recovered/Not Resolved]
  - Hypersensitivity [Unknown]
